FAERS Safety Report 16737620 (Version 1)
Quarter: 2019Q3

REPORT INFORMATION
  Report Type: Spontaneous
  Country: US (occurrence: US)
  Receive Date: 20190823
  Receipt Date: 20190823
  Transmission Date: 20191005
  Serious: Yes (Other)
  Sender: FDA-Public Use
  Company Number: US-ALLERGAN-1934671US

PATIENT

DRUGS (1)
  1. CEFTAROLINE FOSAMIL UNK [Suspect]
     Active Substance: CEFTAROLINE FOSAMIL
     Indication: SKIN BACTERIAL INFECTION
     Dosage: UNK, EQUAL OR MORE THAN 72 H OF ADMINISTATION
     Route: 042

REACTIONS (1)
  - Nephropathy toxic [Unknown]
